FAERS Safety Report 5927744-4 (Version None)
Quarter: 2008Q4

REPORT INFORMATION
  Report Type: 
  Country: None (occurrence: None)
  Receive Date: 20081023
  Receipt Date: 20081014
  Transmission Date: 20090506
  Serious: Yes (Hospitalization)
  Sender: FDA-Public Use
  Company Number: US-ABBOTT-08P-163-0482444-00

PATIENT
  Sex: Male
  Weight: 70.37 kg

DRUGS (3)
  1. HUMIRA [Suspect]
     Indication: CROHN'S DISEASE
     Route: 058
     Dates: start: 20080401, end: 20080801
  2. VIGRAN [Concomitant]
     Indication: DRUG USE FOR UNKNOWN INDICATION
  3. ACETAMINOPHEN [Concomitant]
     Indication: DRUG USE FOR UNKNOWN INDICATION

REACTIONS (8)
  - ABSCESS [None]
  - CROHN'S DISEASE [None]
  - FISTULA [None]
  - GASTROINTESTINAL OEDEMA [None]
  - GASTROINTESTINAL TRACT MUCOSAL DISCOLOURATION [None]
  - INFECTION [None]
  - POST PROCEDURAL DISCOMFORT [None]
  - PYREXIA [None]
